FAERS Safety Report 5967640-X (Version None)
Quarter: 2008Q4

REPORT INFORMATION
  Report Type: 
  Country: None (occurrence: None)
  Receive Date: 20081126
  Receipt Date: 20081117
  Transmission Date: 20090506
  Serious: Yes (Other)
  Sender: FDA-Public Use
  Company Number: PHBS2007BR06383

PATIENT
  Age: 38 Year
  Sex: Male
  Weight: 69 kg

DRUGS (4)
  1. TEGRETOL [Suspect]
     Indication: CONVULSION
     Dosage: 400 MG, TID
     Route: 048
     Dates: start: 19950101
  2. PHENOBARBITAL TAB [Concomitant]
     Dosage: 2 TABLETS/DAY
     Route: 048
  3. VITAMIN B-12 [Concomitant]
     Dosage: UNK, QW
     Dates: start: 20071212
  4. URBANOL [Concomitant]
     Dosage: 1/2 TAB/D

REACTIONS (12)
  - CHEST PAIN [None]
  - CONVULSION [None]
  - DENTAL CARIES [None]
  - ELECTRONEUROMYOGRAPHY [None]
  - HAND DEFORMITY [None]
  - LEUKOPENIA [None]
  - LIMB OPERATION [None]
  - MALAISE [None]
  - MOUTH INJURY [None]
  - MUSCULOSKELETAL STIFFNESS [None]
  - THALASSAEMIA [None]
  - TINNITUS [None]
